FAERS Safety Report 23870448 (Version 1)
Quarter: 2024Q2

REPORT INFORMATION
  Report Type: Other
  Country: CO (occurrence: None)
  Receive Date: 20240518
  Receipt Date: 20240518
  Transmission Date: 20240716
  Serious: Yes (Hospitalization)
  Sender: FDA-Public Use
  Company Number: CO-ROCHE-2722731

PATIENT
  Age: 59 Year
  Sex: Female
  Weight: 70 kg

DRUGS (4)
  1. ACTEMRA [Suspect]
     Active Substance: TOCILIZUMAB
     Indication: Rheumatoid arthritis
     Route: 042
  2. AMITRIPTYLINE [Concomitant]
     Active Substance: AMITRIPTYLINE
     Indication: Myalgia
     Dosage: DOSE UNKNOWN
     Route: 048
  3. OMEPRAZOLE [Concomitant]
     Active Substance: DONEPEZIL HYDROCHLORIDE\OMEPRAZOLE\OMEPRAZOLE MAGNESIUM
     Dosage: DOSE UNKNOWN
     Route: 048
  4. CALCITRIOL [Concomitant]
     Active Substance: CALCITRIOL
     Dosage: DOSE UNKNOWN
     Route: 048

REACTIONS (2)
  - Arthritis infective [Recovering/Resolving]
  - Arthralgia [Recovering/Resolving]

NARRATIVE: CASE EVENT DATE: 20191201
